FAERS Safety Report 6243572-7 (Version None)
Quarter: 2009Q2

REPORT INFORMATION
  Report Type: 
  Country: None (occurrence: None)
  Receive Date: 20090622
  Receipt Date: 20090611
  Transmission Date: 20091009
  Serious: Yes (Other)
  Sender: FDA-Public Use
  Company Number: 2009SP013444

PATIENT
  Age: 36 Year
  Sex: Male
  Weight: 65 kg

DRUGS (1)
  1. DIPROSPAN (BETAMETHASONE SODIUM PHOSPHATE/DIPROPIONATE) (BETAMETHASONE [Suspect]
     Indication: AMYLOIDOSIS
     Dosage: ; ONCE; IM
     Route: 030
     Dates: start: 20080101, end: 20080101

REACTIONS (4)
  - DIZZINESS [None]
  - DYSLALIA [None]
  - PRURITUS [None]
  - VISION BLURRED [None]
